FAERS Safety Report 7369140-1 (Version None)
Quarter: 2011Q1

REPORT INFORMATION
  Report Type: 
  Country: None (occurrence: None)
  Receive Date: 20110323
  Receipt Date: 20110322
  Transmission Date: 20110831
  Serious: No
  Sender: FDA-Public Use
  Company Number: US-PFIZER INC-2011063604

PATIENT
  Sex: Male
  Weight: 62.132 kg

DRUGS (9)
  1. VITAMIN-MINERAL COMPOUND TAB [Concomitant]
     Indication: MACULAR DEGENERATION
     Dosage: DAILY
     Route: 048
  2. LIPITOR [Concomitant]
     Indication: BLOOD CHOLESTEROL ABNORMAL
     Dosage: 40 MG, 1X/DAY
     Route: 048
  3. ASPIRIN [Concomitant]
     Indication: ANTIPLATELET THERAPY
     Dosage: 325 MG, 1X/DAY
  4. NASONEX [Concomitant]
     Indication: SINUS CONGESTION
     Dosage: 50 UG, 1X/DAY
     Route: 055
  5. MUCINEX [Concomitant]
     Indication: SINUS CONGESTION
     Dosage: 600 MG, 1X/DAY
     Route: 048
  6. TOPROL-XL [Concomitant]
     Indication: BLOOD PRESSURE ABNORMAL
     Dosage: 50 MG, 1X/DAY
     Route: 048
  7. VITAMIN B-12 [Concomitant]
     Dosage: UNK
  8. CHANTIX [Suspect]
     Indication: SMOKING CESSATION THERAPY
     Dosage: 0.5 MG, 1X/DAY
     Route: 048
     Dates: start: 20110301, end: 20110322
  9. VITAMIN D [Concomitant]
     Dosage: UNK

REACTIONS (1)
  - INSOMNIA [None]
